FAERS Safety Report 24529379 (Version 4)
Quarter: 2024Q4

REPORT INFORMATION
  Report Type: Spontaneous
  Country: DE (occurrence: DE)
  Receive Date: 20241021
  Receipt Date: 20241216
  Transmission Date: 20250114
  Serious: Yes (Hospitalization)
  Sender: SANDOZ
  Company Number: DE-ROCHE-10000080339

PATIENT
  Age: 68 Year
  Sex: Female
  Weight: 65 kg

DRUGS (82)
  1. CYCLOPHOSPHAMIDE [Suspect]
     Active Substance: CYCLOPHOSPHAMIDE
     Indication: Diffuse large B-cell lymphoma
     Dosage: 1245 MG, TIW, OSE LAST STUDY DRUG ADMIN PRIOR AE IS 1245 MGDOSE LAST STUDY DRUG ADMIN PRIOR SAE IS 1
     Route: 042
     Dates: start: 20240710
  2. DOXORUBICIN [Suspect]
     Active Substance: DOXORUBICIN
     Indication: Diffuse large B-cell lymphoma
     Dosage: DOSE LAST STUDY DRUG ADMIN PRIOR AE IS 83 MGDOSE LAST STUDY DRUG ADMIN PRIOR SAE IS 83 MG
     Route: 042
     Dates: start: 20240710
  3. PREDNISOLONE [Suspect]
     Active Substance: PREDNISOLONE
     Dosage: 100 MG, TIW
     Route: 048
     Dates: start: 20240710
  4. PREDNISOLONE [Suspect]
     Active Substance: PREDNISOLONE
     Indication: Diffuse large B-cell lymphoma
     Dosage: UNK
     Route: 065
  5. ACYCLOVIR [Concomitant]
     Active Substance: ACYCLOVIR
     Indication: Product used for unknown indication
     Dosage: 400 MG, QD, GIVEN FOR PROPHYLAXIS IS YES
     Route: 048
     Dates: start: 20240710
  6. ALLOPURINOL [Concomitant]
     Active Substance: ALLOPURINOL
     Indication: Product used for unknown indication
     Dosage: 300 MG, QD, GIVEN FOR PROPHYLAXIS IS YES
     Route: 048
     Dates: start: 20240821, end: 20240821
  7. ALLOPURINOL [Concomitant]
     Active Substance: ALLOPURINOL
     Dosage: 300 MG, QD, GIVEN FOR PROPHYLAXIS IS YES
     Route: 048
     Dates: start: 20240930
  8. ALLOPURINOL [Concomitant]
     Active Substance: ALLOPURINOL
     Dosage: 300 MG, QD, GIVEN FOR PROPHYLAXIS IS YES
     Route: 048
     Dates: start: 20240930
  9. APREPITANT [Concomitant]
     Active Substance: APREPITANT
     Dosage: 125 MG, QD, GIVEN FOR PROPHYLAXIS IS YES
     Route: 048
     Dates: start: 20240821, end: 20240821
  10. APREPITANT [Concomitant]
     Active Substance: APREPITANT
     Dosage: 125 MG, QD, GIVEN FOR PROPHYLAXIS IS YES
     Route: 048
     Dates: start: 20240930, end: 20240930
  11. APREPITANT [Concomitant]
     Active Substance: APREPITANT
     Dosage: 125 MG, QD, GIVEN FOR PROPHYLAXIS IS YES
     Route: 048
     Dates: start: 20240930, end: 20240930
  12. APREPITANT [Concomitant]
     Active Substance: APREPITANT
     Indication: Product used for unknown indication
     Dosage: 80 MG, QD, GIVEN FOR PROPHYLAXIS IS YES
     Route: 048
     Dates: start: 20240822, end: 20240823
  13. APREPITANT [Concomitant]
     Active Substance: APREPITANT
     Dosage: 80 MG, QD, GIVEN FOR PROPHYLAXIS IS YES
     Route: 048
     Dates: start: 20241001, end: 20241002
  14. APREPITANT [Concomitant]
     Active Substance: APREPITANT
     Dosage: 80 MG, QD, GIVEN FOR PROPHYLAXIS IS YES
     Route: 048
     Dates: start: 20241001, end: 20241002
  15. BISACODYL [Concomitant]
     Active Substance: BISACODYL
     Indication: Constipation
     Dosage: 10.000MG
     Route: 054
     Dates: start: 20240921
  16. BISACODYL [Concomitant]
     Active Substance: BISACODYL
     Indication: Product used for unknown indication
     Dosage: 10.000MG
     Route: 054
     Dates: start: 20240921
  17. BISACODYL [Concomitant]
     Active Substance: BISACODYL
     Indication: Constipation
     Dosage: UNK
     Route: 065
  18. BISOPROLOL [Concomitant]
     Active Substance: BISOPROLOL
     Indication: Hypertension
     Dosage: 2.500MG QD
     Route: 048
     Dates: end: 20240910
  19. BUTYLSCOPOLAMINE BROMIDE [Concomitant]
     Active Substance: BUTYLSCOPOLAMINE BROMIDE
     Indication: Abdominal pain upper
     Dosage: 20 MG
     Route: 048
     Dates: start: 20240712
  20. BUTYLSCOPOLAMINE BROMIDE [Concomitant]
     Active Substance: BUTYLSCOPOLAMINE BROMIDE
     Indication: Product used for unknown indication
  21. CEFAZOLIN [Concomitant]
     Active Substance: CEFAZOLIN
     Indication: Product used for unknown indication
     Dosage: 2 MG GIVEN FOR PROPHYLAXIS IS YES
     Route: 042
     Dates: start: 20240930, end: 20241001
  22. CLEMASTINE [Concomitant]
     Active Substance: CLEMASTINE
     Indication: Allergy prophylaxis
     Dosage: 2 MG, QD, GIVEN FOR PROPHYLAXIS IS YES
     Route: 042
     Dates: start: 20240821, end: 20240822
  23. CLEMASTINE [Concomitant]
     Active Substance: CLEMASTINE
     Dosage: 2 MG, QD, GIVEN FOR PROPHYLAXIS IS YES
     Route: 042
     Dates: start: 20240930, end: 20241001
  24. CLEMASTINE [Concomitant]
     Active Substance: CLEMASTINE
     Dosage: 2 MG, QD, GIVEN FOR PROPHYLAXIS IS YES
     Route: 042
     Dates: start: 20240930, end: 20241001
  25. CHOLECALCIFEROL [Concomitant]
     Active Substance: CHOLECALCIFEROL
     Indication: Product used for unknown indication
     Dosage: 20000 IU
     Route: 048
     Dates: start: 20240802
  26. FOLIC ACID [Concomitant]
     Active Substance: FOLIC ACID
     Indication: Product used for unknown indication
     Dosage: 5 MG
     Route: 048
  27. GLYCERIN [Concomitant]
     Active Substance: GLYCERIN
     Indication: Constipation
     Dosage: 1.000G
     Route: 054
     Dates: start: 20240921
  28. GLYCERIN [Concomitant]
     Active Substance: GLYCERIN
     Indication: Product used for unknown indication
     Dosage: 1.000G
     Route: 054
     Dates: start: 20240921
  29. GLYCERIN [Concomitant]
     Active Substance: GLYCERIN
     Indication: Constipation
     Dosage: UNK
     Route: 065
  30. GRANISETRON [Concomitant]
     Active Substance: GRANISETRON
     Indication: Product used for unknown indication
     Dosage: 1 MG, QD, GIVEN FOR PROPHYLAXIS IS YES
     Route: 042
     Dates: start: 20240821, end: 20240821
  31. GRANISETRON [Concomitant]
     Active Substance: GRANISETRON
     Dosage: 1 MG, QD, GIVEN FOR PROPHYLAXIS IS YES
     Route: 042
     Dates: start: 20240930, end: 20240930
  32. GRANISETRON [Concomitant]
     Active Substance: GRANISETRON
     Dosage: 1 MG, QD, GIVEN FOR PROPHYLAXIS IS YES
     Route: 042
     Dates: start: 20240930, end: 20240930
  33. HYDROMORPHONE [Concomitant]
     Active Substance: HYDROMORPHONE
     Indication: Pain
     Dosage: 1.3 MG
     Route: 048
  34. POLYETHYLENE GLYCOLS [Concomitant]
     Active Substance: POLYETHYLENE GLYCOLS
     Indication: Constipation
     Dosage: 13.8 G
     Route: 048
     Dates: start: 20240909
  35. POLYETHYLENE GLYCOLS [Concomitant]
     Active Substance: POLYETHYLENE GLYCOLS
     Indication: Product used for unknown indication
  36. MAGALDRATE [Concomitant]
     Active Substance: MAGALDRATE
     Indication: Dyspepsia
     Dosage: 1600MG/10ML
     Route: 065
  37. MAGALDRATE [Concomitant]
     Active Substance: MAGALDRATE
     Dosage: UNK
     Route: 048
     Dates: start: 20240917
  38. MELATONIN [Concomitant]
     Active Substance: MELATONIN
     Indication: Insomnia
     Dosage: 2 MG
     Route: 048
     Dates: start: 20240717
  39. MELATONIN [Concomitant]
     Active Substance: MELATONIN
     Indication: Insomnia
  40. MELATONIN [Concomitant]
     Active Substance: MELATONIN
     Indication: Product used for unknown indication
  41. MEROPENEM [Concomitant]
     Active Substance: MEROPENEM
     Indication: Product used for unknown indication
     Dosage: 1000 MG, GIVEN FOR PROPHYLAXIS IS YES
     Route: 042
     Dates: start: 20240821, end: 20240821
  42. MESNA [Concomitant]
     Active Substance: MESNA
     Indication: Product used for unknown indication
     Dosage: 400 MG, GIVEN FOR PROPHYLAXIS IS YES
     Route: 042
     Dates: start: 20240821, end: 20240821
  43. MESNA [Concomitant]
     Active Substance: MESNA
     Dosage: 400.000MG
     Route: 048
     Dates: start: 20240930, end: 20240930
  44. MESNA [Concomitant]
     Active Substance: MESNA
     Dosage: 400.000MG
     Route: 048
     Dates: start: 20240930, end: 20240930
  45. METAMIZOL [Concomitant]
     Active Substance: METAMIZOLE SODIUM
     Indication: Pain
     Dosage: 500.000MG
     Route: 048
     Dates: start: 20240710
  46. METAMIZOL [Concomitant]
     Active Substance: METAMIZOLE SODIUM
     Indication: Pyrexia
  47. PANTOPRAZOLE SODIUM [Concomitant]
     Active Substance: PANTOPRAZOLE SODIUM
     Indication: Product used for unknown indication
     Dosage: 40.000MG QD
     Route: 048
  48. ACETAMINOPHEN [Concomitant]
     Active Substance: ACETAMINOPHEN
     Dosage: 1000 MG, QD, GIVEN FOR PROPHYLAXIS IS YES
     Route: 042
     Dates: start: 20240821, end: 20240821
  49. ACETAMINOPHEN [Concomitant]
     Active Substance: ACETAMINOPHEN
     Indication: Prophylaxis
     Dosage: 1000 MG, QD, GIVEN FOR PROPHYLAXIS IS YES
     Route: 048
     Dates: start: 20240822, end: 20240822
  50. ACETAMINOPHEN [Concomitant]
     Active Substance: ACETAMINOPHEN
     Dosage: 1000 MG, QD, GIVEN FOR PROPHYLAXIS IS YES
     Route: 048
     Dates: start: 20240930, end: 20241001
  51. ACETAMINOPHEN [Concomitant]
     Active Substance: ACETAMINOPHEN
     Dosage: 1000 MG, QD, GIVEN FOR PROPHYLAXIS IS YES
     Route: 048
     Dates: start: 20240930, end: 20241001
  52. PEGFILGRASTIM [Concomitant]
     Active Substance: PEGFILGRASTIM
     Indication: Product used for unknown indication
     Dosage: 6 MG, QD, GIVEN FOR PROPHYLAXIS IS YES
     Route: 058
     Dates: start: 20240823, end: 20240823
  53. PEGFILGRASTIM [Concomitant]
     Active Substance: PEGFILGRASTIM
     Dosage: 6 MG, QD, GIVEN FOR PROPHYLAXIS IS YES
     Route: 058
     Dates: start: 20241002, end: 20241002
  54. PEGFILGRASTIM [Concomitant]
     Active Substance: PEGFILGRASTIM
     Dosage: 6 MG, QD, GIVEN FOR PROPHYLAXIS IS YES
     Route: 058
     Dates: start: 20241002, end: 20241002
  55. PEGFILGRASTIM [Concomitant]
     Active Substance: PEGFILGRASTIM
     Dosage: 6.000MG QD
     Route: 042
  56. PEGFILGRASTIM [Concomitant]
     Active Substance: PEGFILGRASTIM
     Dosage: 6.000MG QD
     Route: 042
  57. PIPAMPERONE HYDROCHLORIDE [Concomitant]
     Active Substance: PIPAMPERONE HYDROCHLORIDE
     Indication: Product used for unknown indication
     Dosage: 40 MG
     Route: 048
     Dates: start: 20240909
  58. PIPERACILLIN SODIUM\TAZOBACTAM SODIUM [Concomitant]
     Active Substance: PIPERACILLIN SODIUM\TAZOBACTAM SODIUM
     Indication: Product used for unknown indication
     Dosage: 13.8 G
     Route: 048
     Dates: start: 20240909
  59. PIPERACILLIN SODIUM\TAZOBACTAM SODIUM [Concomitant]
     Active Substance: PIPERACILLIN SODIUM\TAZOBACTAM SODIUM
     Dosage: UNK
     Route: 042
     Dates: start: 20240909, end: 20240920
  60. POLATUZUMAB VEDOTIN [Concomitant]
     Active Substance: POLATUZUMAB VEDOTIN
     Indication: Diffuse large B-cell lymphoma
     Dosage: 122.4 MG, TIW, DOSE LAST STUDY DRUG ADMIN PRIOR AE IS 122.4 MGDOSE LAST STUDY DRUG ADMIN PRIOR SAE I
     Route: 042
     Dates: start: 20240711
  61. PREDNISONE [Concomitant]
     Active Substance: PREDNISONE
     Indication: Diffuse large B-cell lymphoma
     Dosage: 100 MG, TIW, DOSE LAST STUDY DRUG ADMIN PRIOR AE IS 100 MGDOSE LAST STUDY DRUG ADMIN PRIOR SAE IS 10
     Route: 048
     Dates: start: 20240710
  62. Ringer Acetat [Concomitant]
     Indication: Product used for unknown indication
     Dosage: 1000.000ML QD
     Route: 042
     Dates: start: 20240910, end: 20240913
  63. Ringer Acetat [Concomitant]
     Dosage: 1000.000ML QD
     Route: 042
     Dates: start: 20240930, end: 20240930
  64. Ringer Acetat [Concomitant]
     Dosage: 1000.000ML QD
     Route: 042
     Dates: start: 20240930, end: 20240930
  65. Ringer Acetat [Concomitant]
     Dosage: 500.000ML QD
     Route: 042
     Dates: start: 20241001, end: 20241001
  66. Ringer Acetat [Concomitant]
     Dosage: 500.000ML QD
     Route: 042
     Dates: start: 20241001, end: 20241001
  67. Ringer Acetat [Concomitant]
     Dosage: 500.000ML QD
     Route: 042
  68. Ringer Acetat [Concomitant]
     Dosage: 500.000ML QD
     Route: 042
  69. RITUXIMAB [Concomitant]
     Active Substance: RITUXIMAB
     Indication: Diffuse large B-cell lymphoma
     Dosage: 622.5 MG, TIW, DOSE LAST STUDY DRUG ADMIN PRIOR AE IS 622.5 MGDOSE LAST STUDY DRUG ADMIN PRIOR SAE I
     Route: 042
     Dates: start: 20240710
  70. SIMVASTATIN [Concomitant]
     Active Substance: SIMVASTATIN
     Indication: Hypercholesterolaemia
     Dosage: 20.000MG QD
     Route: 048
  71. SULFAMETHOXAZOLE AND TRIMETHOPRIM [Concomitant]
     Active Substance: SULFAMETHOXAZOLE\TRIMETHOPRIM
     Indication: Product used for unknown indication
     Dosage: 1 DF
     Route: 048
  72. TEICOPLANIN [Concomitant]
     Active Substance: TEICOPLANIN
     Indication: Product used for unknown indication
     Dosage: 400 MG, QD
     Route: 042
     Dates: start: 20240910, end: 20240911
  73. TEICOPLANIN [Concomitant]
     Active Substance: TEICOPLANIN
     Dosage: 400.000MG QD
     Route: 042
     Dates: start: 20240921, end: 20241002
  74. TEICOPLANIN [Concomitant]
     Active Substance: TEICOPLANIN
     Dosage: 400.000MG QD
     Route: 042
     Dates: start: 20240921, end: 20241002
  75. TINZAPARIN [Concomitant]
     Active Substance: TINZAPARIN
     Indication: Thrombosis prophylaxis
     Dosage: 4500 IU, QD, GIVEN FOR PROPHYLAXIS IS YES
     Route: 058
     Dates: start: 20240820, end: 20240823
  76. TINZAPARIN [Concomitant]
     Active Substance: TINZAPARIN
     Dosage: 4500 IU, QD, GIVEN FOR PROPHYLAXIS IS YES
     Route: 058
     Dates: start: 20240909, end: 20240909
  77. TINZAPARIN [Concomitant]
     Active Substance: TINZAPARIN
     Dosage: 4500 IU, QD, GIVEN FOR PROPHYLAXIS IS YES
     Route: 058
     Dates: start: 20240909, end: 20240909
  78. TINZAPARIN [Concomitant]
     Active Substance: TINZAPARIN
     Dosage: 4500 IU, QD, GIVEN FOR PROPHYLAXIS IS YES
     Route: 058
     Dates: start: 20240912, end: 20241002
  79. TINZAPARIN [Concomitant]
     Active Substance: TINZAPARIN
     Dosage: 4500 IU, QD, GIVEN FOR PROPHYLAXIS IS YES
     Route: 058
     Dates: start: 20240912, end: 20241002
  80. ZOLPIDEM [Concomitant]
     Active Substance: ZOLPIDEM TARTRATE
     Indication: Insomnia
     Dosage: 5 MG
     Route: 048
     Dates: start: 20240716
  81. ZOLPIDEM [Concomitant]
     Active Substance: ZOLPIDEM TARTRATE
     Indication: Insomnia
  82. ZOLPIDEM [Concomitant]
     Active Substance: ZOLPIDEM TARTRATE
     Indication: Product used for unknown indication

REACTIONS (2)
  - Urinary tract infection [Recovered/Resolved]
  - Pneumonia [Recovered/Resolved]

NARRATIVE: CASE EVENT DATE: 20240909
